FAERS Safety Report 4472958-6 (Version None)
Quarter: 2004Q4

REPORT INFORMATION
  Report Type: 
  Country: None (occurrence: None)
  Receive Date: 20041012
  Receipt Date: 20041012
  Transmission Date: 20050328
  Serious: Yes (Hospitalization)
  Sender: FDA-Public Use
  Company Number: None

PATIENT
  Age: 77 Year
  Sex: Male
  Weight: 68.8 kg

DRUGS (2)
  1. VANCOMYCIN [Suspect]
     Indication: GRAM STAIN POSITIVE
     Dosage: 2 G , 1 G , Q12 H , IV
     Route: 042
     Dates: start: 20040726, end: 20040727
  2. VANCOMYCIN [Suspect]
     Indication: SEPSIS
     Dosage: 2 G , 1 G , Q12 H , IV
     Route: 042
     Dates: start: 20040726, end: 20040727

REACTIONS (1)
  - RASH [None]
